FAERS Safety Report 8004669-4 (Version None)
Quarter: 2011Q4

REPORT INFORMATION
  Report Type: 
  Country: None (occurrence: None)
  Receive Date: 20111223
  Receipt Date: 20111215
  Transmission Date: 20120403
  Serious: Yes (Hospitalization)
  Sender: FDA-Public Use
  Company Number: US-JNJFOC-20111207999

PATIENT
  Sex: Male
  Weight: 108 kg

DRUGS (11)
  1. BIAXIN [Concomitant]
  2. ACETAMINOPHEN [Concomitant]
  3. CALCIUM CARBONATE [Concomitant]
  4. ALBUTEROL [Concomitant]
  5. MESALAMINE [Concomitant]
     Route: 054
  6. VITAMIN D [Concomitant]
  7. PREVACID [Concomitant]
  8. PREDNISONE [Concomitant]
  9. REMICADE [Suspect]
     Indication: CROHN'S DISEASE
     Route: 042
     Dates: start: 20110413
  10. MESALAMINE [Concomitant]
     Route: 048
  11. MUCINEX [Concomitant]

REACTIONS (1)
  - ABDOMINAL PAIN [None]
